FAERS Safety Report 24324026 (Version 1)
Quarter: 2024Q3

REPORT INFORMATION
  Report Type: Spontaneous
  Country: US (occurrence: None)
  Receive Date: 20240913
  Receipt Date: 20240913
  Transmission Date: 20241017
  Serious: Yes (Other)
  Sender: Public
  Company Number: None

PATIENT
  Age: 71 Year
  Sex: Male
  Weight: 83 kg

DRUGS (3)
  1. GAMMAKED [Suspect]
     Active Substance: HUMAN IMMUNOGLOBULIN G
     Dosage: 80 G GRAM(S) EVERY 2 WEEKS INTRAVENOUS;?
     Route: 042
     Dates: start: 20240205
  2. ROPINIROLE [Concomitant]
     Active Substance: ROPINIROLE
  3. BENADRYL [Suspect]
     Active Substance: DIPHENHYDRAMINE HYDROCHLORIDE

REACTIONS (5)
  - Dizziness [None]
  - Muscle twitching [None]
  - Chest pain [None]
  - Dyspepsia [None]
  - Infusion related reaction [None]

NARRATIVE: CASE EVENT DATE: 20240824
